FAERS Safety Report 9306580 (Version 1)
Quarter: 2013Q2

REPORT INFORMATION
  Report Type: Spontaneous
  Country: US (occurrence: US)
  Receive Date: 20130523
  Receipt Date: 20130523
  Transmission Date: 20140414
  Serious: Yes (Other)
  Sender: FDA-Public Use
  Company Number: US-AMGEN-USASP2013035655

PATIENT
  Age: 41 Year
  Sex: Female
  Weight: 95.24 kg

DRUGS (9)
  1. ENBREL [Suspect]
     Indication: PSORIATIC ARTHROPATHY
     Dosage: 50 MG, ONCE A WEEK
     Route: 058
  2. DICLOFENAC [Concomitant]
     Dosage: 75 MG EC, UNK
  3. VICODIN [Concomitant]
     Dosage: 5-500 MG, UNK
  4. PRILOSEC                           /00661201/ [Concomitant]
     Dosage: 20 MG, UNK
  5. CELEXA                             /00582602/ [Concomitant]
     Dosage: 10 MG, UNK
  6. HYDROCODONE/APAP [Concomitant]
     Dosage: 2.5-500
  7. MULTITABS [Concomitant]
     Dosage: UNK
  8. HISTATAB [Concomitant]
     Dosage: UNK
  9. TIZANIDINE [Concomitant]
     Dosage: 2 MG, UNK

REACTIONS (7)
  - Palpitations [Unknown]
  - Swelling face [Unknown]
  - Butterfly rash [Unknown]
  - Heart rate increased [Unknown]
  - Local swelling [Unknown]
  - Rash [Unknown]
  - Pain [Unknown]
